FAERS Safety Report 19140248 (Version 1)
Quarter: 2021Q2

REPORT INFORMATION
  Report Type: Spontaneous
  Country: US (occurrence: US)
  Receive Date: 20210415
  Receipt Date: 20210415
  Transmission Date: 20210717
  Serious: Yes (Death, Other)
  Sender: FDA-Public Use
  Company Number: US-SA-2021SA123197

PATIENT
  Age: 58 Year
  Sex: Female

DRUGS (2)
  1. COUMADIN [Concomitant]
     Active Substance: WARFARIN SODIUM
  2. CEREZYME [Suspect]
     Active Substance: IMIGLUCERASE
     Indication: GAUCHER^S DISEASE
     Dosage: UNK
     Route: 065

REACTIONS (8)
  - Limb prosthesis user [Unknown]
  - Renal disorder [Unknown]
  - Stent placement [Unknown]
  - Ill-defined disorder [Unknown]
  - Dyspnoea [Unknown]
  - Death [Fatal]
  - Carotid artery disease [Unknown]
  - Drain placement [Unknown]

NARRATIVE: CASE EVENT DATE: 202103
